FAERS Safety Report 4350925-0 (Version None)
Quarter: 2004Q2

REPORT INFORMATION
  Report Type: 
  Country: None (occurrence: None)
  Receive Date: 20040430
  Receipt Date: 20031029
  Transmission Date: 20050107
  Serious: Yes (Death, Other)
  Sender: FDA-Public Use
  Company Number: US-GLAXOSMITHKLINE-B0313905A

PATIENT
  Age: 28 Year
  Sex: Male

DRUGS (5)
  1. BUPROPION HCL [Suspect]
     Dosage: 13TAB PER DAY
     Route: 065
  2. VERAPAMIL [Suspect]
     Dosage: 30TAB PER DAY
     Route: 048
  3. VENLAFAXINE [Suspect]
     Dosage: 1575MG PER DAY
     Route: 065
  4. COCAINE [Suspect]
     Route: 065
  5. BENZODIAZEPINE [Concomitant]

REACTIONS (9)
  - BLOOD CREATININE INCREASED [None]
  - BLOOD PRESSURE DECREASED [None]
  - BLOOD UREA INCREASED [None]
  - BUNDLE BRANCH BLOCK [None]
  - CARDIAC ARREST [None]
  - COMPLETED SUICIDE [None]
  - CONVULSION [None]
  - HEART RATE DECREASED [None]
  - RESPIRATORY RATE DECREASED [None]
